FAERS Safety Report 8742403 (Version 2)
Quarter: 2012Q4

REPORT INFORMATION
  Report Type: 
  Country: US (occurrence: US)
  Receive Date: 20120824
  Receipt Date: 20120829
  Transmission Date: 20130627
  Serious: Yes (Other)
  Sender: FDA-Public Use
  Company Number: US-PFIZER INC-2012158060

PATIENT
  Age: 60 Year
  Sex: Female

DRUGS (13)
  1. CELEBREX [Suspect]
     Dosage: 200 mg, 1x/day
  2. LYRICA [Suspect]
     Dosage: 50 mg, 1x/day
  3. PRISTIQ [Suspect]
     Dosage: UNK
  4. PROTONIX [Suspect]
     Dosage: 40 mg, 2x/day
  5. SIMVASTATIN [Concomitant]
     Dosage: 20 mg, 1x/day
  6. VITAMIN D3 [Concomitant]
     Dosage: 2000 Unit 1x/day
  7. ACETYLSALICYLIC ACID [Concomitant]
     Dosage: 81 mg, 1x/day
  8. JANUVIA [Concomitant]
     Dosage: 100 mg, 1x/day
  9. NITROGLYCERIN [Concomitant]
     Dosage: 0.4 mg, every 8 hrs
     Route: 060
  10. ZETIA [Concomitant]
     Dosage: 10 mg, 1x/day
  11. ENALAPRIL MALEATE [Concomitant]
     Dosage: 10 mg, 2x/day
  12. PLAVIX [Concomitant]
     Dosage: 75 mg, 1x/day
  13. CARVEDILOL [Concomitant]
     Dosage: 3.125 mg, 2x/day

REACTIONS (1)
  - Cerebrovascular accident [Unknown]
